FAERS Safety Report 9160608 (Version 1)
Quarter: 2013Q1

REPORT INFORMATION
  Report Type: Report from Study
  Country: DE (occurrence: DE)
  Receive Date: 20130313
  Receipt Date: 20130313
  Transmission Date: 20140127
  Serious: Yes (Death)
  Sender: FDA-Public Use
  Company Number: DE-ABBOTT-13P-062-1051994-00

PATIENT
  Age: 78 Year
  Sex: Male

DRUGS (9)
  1. TRENANTONE [Suspect]
     Indication: PROSTATE CANCER
     Route: 058
     Dates: start: 20120925, end: 20121221
  2. ANTIANDROGENS [Concomitant]
     Indication: PROPHYLAXIS
     Dates: start: 20120925
  3. ACE INHIBITOR/AT1-ANTAGONIST [Concomitant]
     Indication: PRODUCT USED FOR UNKNOWN INDICATION
     Dates: end: 20130130
  4. MARCUMAR [Concomitant]
     Indication: ARRHYTHMIA
     Route: 048
     Dates: end: 20130130
  5. HYDROCHLOROTHIAZIDE [Concomitant]
     Indication: PRODUCT USED FOR UNKNOWN INDICATION
     Dates: end: 20130130
  6. VOTRIENT [Concomitant]
     Indication: PRODUCT USED FOR UNKNOWN INDICATION
     Dates: end: 20130130
  7. SINEMET [Concomitant]
     Indication: PRODUCT USED FOR UNKNOWN INDICATION
  8. PANTOPRAZOL [Concomitant]
     Indication: PRODUCT USED FOR UNKNOWN INDICATION
  9. AFINITOR [Concomitant]
     Indication: RENAL CANCER
     Route: 048
     Dates: start: 20121005, end: 20130130

REACTIONS (2)
  - Death [Fatal]
  - Dementia [Unknown]
